FAERS Safety Report 8094426-5 (Version None)
Quarter: 2012Q1

REPORT INFORMATION
  Report Type: 
  Country: None (occurrence: None)
  Receive Date: 20120130
  Receipt Date: 20120117
  Transmission Date: 20120608
  Serious: Yes (Hospitalization)
  Sender: FDA-Public Use
  Company Number: US-JNJFOC-20111109286

PATIENT
  Sex: Female
  Weight: 119.75 kg

DRUGS (25)
  1. REMICADE [Suspect]
     Route: 042
     Dates: end: 20110901
  2. PLAQUENIL [Concomitant]
     Indication: RHEUMATOID ARTHRITIS
     Route: 065
     Dates: start: 20110101
  3. PLAQUENIL [Concomitant]
     Route: 065
     Dates: end: 20110101
  4. WARFARIN SODIUM [Concomitant]
     Dosage: 10 MG DAILY X 10 DAYS
     Route: 065
  5. CARVEDILOL [Concomitant]
     Route: 065
  6. VITAMIN B-12 [Concomitant]
     Route: 065
  7. REMICADE [Suspect]
     Indication: CROHN'S DISEASE
     Route: 042
     Dates: start: 20111001, end: 20111001
  8. REMICADE [Suspect]
     Route: 042
     Dates: start: 20110121
  9. FLAX SEED OIL [Concomitant]
     Route: 065
  10. REMICADE [Suspect]
     Route: 042
     Dates: start: 20110204
  11. TRIAMTERENE AND HYDROCHLOROTHIAZIDE [Concomitant]
     Dosage: 75/50 MG, HALF TABLET
     Route: 065
  12. ASACOL [Concomitant]
     Route: 065
  13. ASCORBIC ACID [Concomitant]
     Dosage: 1 DOSE(S) IS ONE TABLET
     Route: 065
  14. CEPHALEXIN [Concomitant]
     Route: 065
  15. CALCIUM [Concomitant]
     Route: 065
  16. PROBIOTIC VITAMIN [Concomitant]
     Route: 065
  17. REMICADE [Suspect]
     Route: 042
     Dates: start: 20110201
  18. VITAMIN B COMPLEX CAP [Concomitant]
     Route: 065
  19. PREDNISONE TAB [Concomitant]
     Route: 065
  20. TRAMADOL HCL [Concomitant]
     Route: 065
  21. SYNTHROID [Concomitant]
     Route: 065
  22. CYCLOBENZAPRINE [Concomitant]
     Route: 065
  23. ZINC SULFATE [Concomitant]
     Route: 065
  24. HOME OXYGEN THERAPY [Concomitant]
     Route: 065
  25. ALL OTHER THERAPEUTIC PRODUCTS [Concomitant]
     Route: 065

REACTIONS (16)
  - PERICARDIAL EFFUSION [None]
  - EJECTION FRACTION DECREASED [None]
  - INCISIONAL DRAINAGE [None]
  - CARDIAC DISORDER [None]
  - TACHYCARDIA [None]
  - INFUSION RELATED REACTION [None]
  - OEDEMA PERIPHERAL [None]
  - MYALGIA [None]
  - BRONCHITIS [None]
  - THERAPEUTIC RESPONSE DECREASED [None]
  - RASH [None]
  - LEFT VENTRICULAR DYSFUNCTION [None]
  - CARDIAC FAILURE CONGESTIVE [None]
  - COLITIS [None]
  - ARTHRALGIA [None]
  - CONGESTIVE CARDIOMYOPATHY [None]
